FAERS Safety Report 6956436-8 (Version None)
Quarter: 2010Q3

REPORT INFORMATION
  Report Type: 
  Country: None (occurrence: None)
  Receive Date: 20100830
  Receipt Date: 20100819
  Transmission Date: 20110219
  Serious: Yes (Life-Threatening, Hospitalization)
  Sender: FDA-Public Use
  Company Number: B0672010A

PATIENT
  Age: 68 Year
  Sex: Male

DRUGS (2)
  1. ZENTEL [Suspect]
     Dosage: 400MG TWICE PER DAY
     Route: 048
     Dates: start: 20080501, end: 20100621
  2. METFORMIN HCL [Concomitant]
     Route: 048
     Dates: start: 20100601

REACTIONS (1)
  - BONE MARROW FAILURE [None]
